FAERS Safety Report 14370759 (Version 1)
Quarter: 2018Q1

REPORT INFORMATION
  Report Type: Spontaneous
  Country: US (occurrence: US)
  Receive Date: 20180110
  Receipt Date: 20180110
  Transmission Date: 20180509
  Serious: No
  Sender: FDA-Public Use
  Company Number: US-PFIZER INC-2017445570

PATIENT
  Age: 74 Year
  Sex: Male
  Weight: 72.57 kg

DRUGS (2)
  1. VFEND [Suspect]
     Active Substance: VORICONAZOLE
     Indication: ANTIFUNGAL TREATMENT
     Dosage: 2 PILLS A DAY
     Dates: start: 201707
  2. VFEND [Suspect]
     Active Substance: VORICONAZOLE
     Dosage: UNK UNK, 2X/DAY (200MG TABLET 1 AND 1/2 TABLETS)
     Route: 048

REACTIONS (5)
  - Diarrhoea [Not Recovered/Not Resolved]
  - Feeding disorder [Unknown]
  - Lactose intolerance [Recovering/Resolving]
  - Rash [Recovered/Resolved]
  - White blood cell count decreased [Unknown]

NARRATIVE: CASE EVENT DATE: 2017
